FAERS Safety Report 24595624 (Version 1)
Quarter: 2024Q4

REPORT INFORMATION
  Report Type: Spontaneous
  Country: FR (occurrence: FR)
  Receive Date: 20241109
  Receipt Date: 20241109
  Transmission Date: 20250114
  Serious: Yes (Hospitalization)
  Sender: SANOFI AVENTIS
  Company Number: None

PATIENT
  Age: 78 Year
  Sex: Female
  Weight: 74 kg

DRUGS (4)
  1. LANSOPRAZOLE [Suspect]
     Active Substance: LANSOPRAZOLE
     Indication: Prophylaxis
     Dosage: 30 MG, QD
     Route: 048
     Dates: start: 20240617, end: 20240806
  2. TEICOPLANIN [Suspect]
     Active Substance: TEICOPLANIN
     Indication: Enterococcal bacteraemia
     Dosage: 500 MG, QD
     Route: 042
     Dates: start: 20240609, end: 20240721
  3. AMIODARONE HYDROCHLORIDE [Suspect]
     Active Substance: AMIODARONE HYDROCHLORIDE
     Indication: Atrial fibrillation
     Dosage: 200 MG, QD
     Route: 048
     Dates: start: 20240608, end: 20240807
  4. LOVENOX [Suspect]
     Active Substance: ENOXAPARIN SODIUM
     Indication: Atrial fibrillation
     Dosage: 8000 IU, Q12H
     Route: 058
     Dates: start: 20240617, end: 20240721

REACTIONS (1)
  - Rash maculo-papular [Recovered/Resolved]

NARRATIVE: CASE EVENT DATE: 20240713
